FAERS Safety Report 24704557 (Version 2)
Quarter: 2025Q1

REPORT INFORMATION
  Report Type: Spontaneous
  Country: US (occurrence: US)
  Receive Date: 20241206
  Receipt Date: 20250318
  Transmission Date: 20250408
  Serious: Yes (Other)
  Sender: COOPERSURGICAL
  Company Number: US-COOPERSURGICAL, INC.-2024CPS003696

PATIENT
  Age: 33 Year
  Sex: Female
  Weight: 105.22 kg

DRUGS (2)
  1. PARAGARD T 380A [Suspect]
     Active Substance: COPPER
     Indication: Contraception
     Route: 015
     Dates: start: 20100422
  2. PROVERA [Concomitant]
     Active Substance: MEDROXYPROGESTERONE ACETATE
     Dosage: 10 MG, 1X/DAY
     Route: 048
     Dates: end: 20190320

REACTIONS (16)
  - Ovarian cyst [Not Recovered/Not Resolved]
  - Reproductive complication associated with device [Not Recovered/Not Resolved]
  - Device breakage [Not Recovered/Not Resolved]
  - Foreign body in reproductive tract [Not Recovered/Not Resolved]
  - Complication of device removal [Not Recovered/Not Resolved]
  - Embedded device [Not Recovered/Not Resolved]
  - Hypersensitivity [Unknown]
  - Depression [Unknown]
  - Emotional distress [Unknown]
  - Coital bleeding [Unknown]
  - Ectropion of cervix [Unknown]
  - Bacterial infection [Unknown]
  - Device material issue [Recovered/Resolved]
  - Vaginal infection [Unknown]
  - Intermenstrual bleeding [Unknown]
  - Abnormal uterine bleeding [Unknown]

NARRATIVE: CASE EVENT DATE: 20170201
